FAERS Safety Report 14022684 (Version 1)
Quarter: 2017Q3

REPORT INFORMATION
  Report Type: Spontaneous
  Country: US (occurrence: US)
  Receive Date: 20170929
  Receipt Date: 20170929
  Transmission Date: 20171128
  Serious: No
  Sender: FDA-Public Use
  Company Number: US-009507513-1709USA000112

PATIENT
  Sex: Female

DRUGS (1)
  1. ZEPATIER [Suspect]
     Active Substance: ELBASVIR\GRAZOPREVIR
     Dosage: 50/100 MG TABLET, 1 TABLET DAILY
     Route: 048
     Dates: start: 20170623

REACTIONS (4)
  - Headache [Unknown]
  - Poor quality sleep [Unknown]
  - Fatigue [Unknown]
  - Asthenia [Unknown]
